FAERS Safety Report 9722889 (Version 2)
Quarter: 2014Q1

REPORT INFORMATION
  Report Type: Spontaneous
  Country: US (occurrence: US)
  Receive Date: 20131202
  Receipt Date: 20140103
  Transmission Date: 20141002
  Serious: Yes (Hospitalization)
  Sender: FDA-Public Use
  Company Number: US-ASTELLAS-2013US012427

PATIENT
  Age: 54 Year
  Sex: Female

DRUGS (2)
  1. PROGRAF [Suspect]
     Indication: RENAL TRANSPLANT
     Dosage: 2 MG, BID
     Route: 048
     Dates: start: 20080117
  2. PROGRAF [Suspect]
     Indication: PANCREAS TRANSPLANT
     Dosage: 0.5 MG, BID
     Route: 048
     Dates: start: 20120622

REACTIONS (3)
  - Off label use [Unknown]
  - Small intestinal obstruction [Unknown]
  - Abdominal pain [Recovering/Resolving]
